FAERS Safety Report 19069582 (Version 1)
Quarter: 2021Q1

REPORT INFORMATION
  Report Type: Spontaneous
  Country: US (occurrence: US)
  Receive Date: 20210329
  Receipt Date: 20210329
  Transmission Date: 20210420
  Serious: No
  Sender: FDA-Public Use
  Company Number: None

PATIENT
  Age: 48 Year
  Sex: Female

DRUGS (1)
  1. POLIDOCANOL SCLEROSING AGENT [Suspect]
     Active Substance: POLIDOCANOL
     Indication: SPIDER VEIN
     Route: 042
     Dates: end: 20181219

REACTIONS (1)
  - Pain in extremity [None]

NARRATIVE: CASE EVENT DATE: 20191108
